FAERS Safety Report 5007197-3 (Version None)
Quarter: 2006Q1

REPORT INFORMATION
  Report Type: 
  Country: None (occurrence: None)
  Receive Date: 20060320
  Receipt Date: 20050602
  Transmission Date: 20060701
  Serious: Yes (Other)
  Sender: FDA-Public Use
  Company Number: 2005-06-0125

PATIENT
  Sex: Female
  Weight: 63.5036 kg

DRUGS (3)
  1. PEG-INTRON [Suspect]
     Indication: HEPATITIS C
     Dosage: 120 MCG/0.5 ML SUBCUTANEOUS
     Route: 058
     Dates: start: 20050410
  2. REBETOL [Suspect]
     Indication: HEPATITIS C
  3. HORMONE REPLACEMENT THERAPY NOS [Concomitant]

REACTIONS (2)
  - DEPRESSION [None]
  - UNDERDOSE [None]
